FAERS Safety Report 9433811 (Version 1)
Quarter: 2013Q3

REPORT INFORMATION
  Report Type: Spontaneous
  Country: BE (occurrence: BE)
  Receive Date: 20130731
  Receipt Date: 20130731
  Transmission Date: 20140515
  Serious: Yes (Other)
  Sender: FDA-Public Use
  Company Number: PHHY2013BE079437

PATIENT
  Age: 58 Year
  Sex: Male

DRUGS (3)
  1. ACLASTA [Suspect]
     Indication: OSTEOPOROSIS
     Dosage: 5 MG, UNK
     Route: 042
     Dates: start: 200902
  2. ACLASTA [Suspect]
     Dosage: 5 MG, UNK
     Route: 042
     Dates: start: 201002
  3. ACLASTA [Suspect]
     Dosage: 5 MG, UNK
     Route: 042
     Dates: start: 201102

REACTIONS (10)
  - Primary sequestrum [Recovered/Resolved]
  - Osteonecrosis of jaw [Recovered/Resolved]
  - Pain [Recovered/Resolved]
  - Oral infection [Recovered/Resolved]
  - Paraesthesia oral [Recovered/Resolved]
  - Oedema mucosal [Recovered/Resolved]
  - Purulent discharge [Recovered/Resolved]
  - Bone fragmentation [Recovered/Resolved]
  - Exposed bone in jaw [Recovered/Resolved]
  - Impaired healing [Recovered/Resolved]
